FAERS Safety Report 13897355 (Version 1)
Quarter: 2017Q3

REPORT INFORMATION
  Report Type: Report from Study
  Country: US (occurrence: US)
  Receive Date: 20170823
  Receipt Date: 20170823
  Transmission Date: 20171127
  Serious: Yes (Death, Other)
  Sender: FDA-Public Use
  Company Number: US-JNJFOC-20160920853

PATIENT
  Age: 70 Year
  Sex: Male

DRUGS (18)
  1. FENOFIBRATE. [Concomitant]
     Active Substance: FENOFIBRATE
  2. CYANOCOBALAMIN. [Concomitant]
     Active Substance: CYANOCOBALAMIN
  3. FOLIC ACID. [Concomitant]
     Active Substance: FOLIC ACID
  4. LEVOTHYROXINE. [Concomitant]
     Active Substance: LEVOTHYROXINE
  5. IMBRUVICA [Suspect]
     Active Substance: IBRUTINIB
     Indication: CHRONIC LYMPHOCYTIC LEUKAEMIA
     Dosage: 280 MG, QOD, 140 MG ON ALTERNATE DAYS
     Route: 048
     Dates: start: 20160511, end: 20170707
  6. IMBRUVICA [Suspect]
     Active Substance: IBRUTINIB
     Indication: CHRONIC LYMPHOCYTIC LEUKAEMIA
     Route: 048
     Dates: start: 201704
  7. CALCIUM [Concomitant]
     Active Substance: CALCIUM
  8. FLUTICASONE. [Concomitant]
     Active Substance: FLUTICASONE
  9. MAGNESIUM CHLORIDE. [Concomitant]
     Active Substance: MAGNESIUM CHLORIDE
  10. CALCIUM W/COLECALCIFEROL [Concomitant]
     Active Substance: CALCIUM\CHOLECALCIFEROL
  11. IMBRUVICA [Suspect]
     Active Substance: IBRUTINIB
     Indication: CHRONIC LYMPHOCYTIC LEUKAEMIA
     Route: 048
     Dates: start: 20150511
  12. IMBRUVICA [Suspect]
     Active Substance: IBRUTINIB
     Indication: CHRONIC LYMPHOCYTIC LEUKAEMIA
     Route: 048
     Dates: start: 20160511
  13. IMBRUVICA [Suspect]
     Active Substance: IBRUTINIB
     Indication: CHRONIC LYMPHOCYTIC LEUKAEMIA
     Route: 048
     Dates: start: 20160511
  14. IMBRUVICA [Suspect]
     Active Substance: IBRUTINIB
     Indication: CHRONIC LYMPHOCYTIC LEUKAEMIA
     Route: 048
     Dates: start: 201704
  15. ACYCLOVIR. [Concomitant]
     Active Substance: ACYCLOVIR
  16. BACTRIM [Concomitant]
     Active Substance: SULFAMETHOXAZOLE\TRIMETHOPRIM
  17. IRON [Concomitant]
     Active Substance: IRON
  18. IMBRUVICA [Suspect]
     Active Substance: IBRUTINIB
     Indication: CHRONIC LYMPHOCYTIC LEUKAEMIA
     Dosage: 140 MG ON ALTERNATE DAYS
     Route: 048
     Dates: start: 20160511

REACTIONS (16)
  - Haemoglobin abnormal [Not Recovered/Not Resolved]
  - Thyroid hormones decreased [Not Recovered/Not Resolved]
  - Splenomegaly [Not Recovered/Not Resolved]
  - Atrial fibrillation [Recovering/Resolving]
  - Arthralgia [Not Recovered/Not Resolved]
  - Musculoskeletal pain [Not Recovered/Not Resolved]
  - Heart valve incompetence [Not Recovered/Not Resolved]
  - Gastrointestinal haemorrhage [Fatal]
  - Pneumonia [Recovered/Resolved]
  - Haemorrhoids [Not Recovered/Not Resolved]
  - Muscle spasms [Not Recovered/Not Resolved]
  - Thrombocytopenia [Not Recovered/Not Resolved]
  - White blood cell count decreased [Not Recovered/Not Resolved]
  - Insomnia [Not Recovered/Not Resolved]
  - Ear tube insertion [Unknown]
  - Squamous cell carcinoma of skin [Not Recovered/Not Resolved]

NARRATIVE: CASE EVENT DATE: 2016
